FAERS Safety Report 14425779 (Version 1)
Quarter: 2018Q1

REPORT INFORMATION
  Report Type: Report from Study
  Country: CA (occurrence: CA)
  Receive Date: 20180123
  Receipt Date: 20180123
  Transmission Date: 20180509
  Serious: Yes (Other)
  Sender: FDA-Public Use
  Company Number: PHHY2016CA176594

PATIENT
  Age: 61 Year
  Sex: Male

DRUGS (1)
  1. GLEEVEC [Suspect]
     Active Substance: IMATINIB MESYLATE
     Indication: GASTROINTESTINAL STROMAL TUMOUR
     Dosage: 400 MG, QD
     Route: 048
     Dates: start: 20161209

REACTIONS (19)
  - Thyroid neoplasm [Unknown]
  - Eye pruritus [Unknown]
  - Prostatic specific antigen increased [Unknown]
  - Conjunctivitis [Unknown]
  - Arthralgia [Unknown]
  - Faeces hard [Unknown]
  - Hypoaesthesia [Unknown]
  - Abdominal distension [Unknown]
  - Acne [Unknown]
  - Bowel movement irregularity [Unknown]
  - Eye disorder [Unknown]
  - Flatulence [Unknown]
  - Diarrhoea [Unknown]
  - Musculoskeletal pain [Unknown]
  - Myalgia [Unknown]
  - Second primary malignancy [Unknown]
  - Eye discharge [Unknown]
  - Ocular hyperaemia [Unknown]
  - Nausea [Unknown]

NARRATIVE: CASE EVENT DATE: 20171013
